FAERS Safety Report 22642726 (Version 1)
Quarter: 2023Q2

REPORT INFORMATION
  Report Type: Spontaneous
  Country: SE (occurrence: SE)
  Receive Date: 20230627
  Receipt Date: 20230627
  Transmission Date: 20230721
  Serious: Yes (Congenital Anomaly, Other)
  Sender: FDA-Public Use
  Company Number: SE-CHEPLA-2023007660

PATIENT
  Sex: Female

DRUGS (2)
  1. CLONAZEPAM [Suspect]
     Active Substance: CLONAZEPAM
     Dosage: START DATE: 12-JUNE
  2. CLONAZEPAM [Suspect]
     Active Substance: CLONAZEPAM

REACTIONS (2)
  - Cardiac arrest [Unknown]
  - Epilepsy [Unknown]
